FAERS Safety Report 12351815 (Version 2)
Quarter: 2016Q2

REPORT INFORMATION
  Report Type: Spontaneous
  Country: DE (occurrence: DE)
  Receive Date: 20160510
  Receipt Date: 20160615
  Transmission Date: 20160815
  Serious: Yes (Death, Other)
  Sender: FDA-Public Use
  Company Number: DE-MALLINCKRODT-T201601646

PATIENT
  Age: 17 Year
  Sex: Male

DRUGS (4)
  1. CITRATE [Suspect]
     Active Substance: CITRIC ACID MONOHYDRATE
     Indication: ANTICOAGULANT THERAPY
     Dosage: UNK
     Route: 065
  2. CITRATE [Suspect]
     Active Substance: CITRIC ACID MONOHYDRATE
     Dosage: UNK
     Route: 065
     Dates: start: 20160425, end: 20160426
  3. UVADEX [Suspect]
     Active Substance: METHOXSALEN
     Indication: GRAFT VERSUS HOST DISEASE
     Dosage: UNK
  4. UVADEX [Suspect]
     Active Substance: METHOXSALEN
     Dosage: UNK
     Dates: start: 20160425, end: 20160426

REACTIONS (3)
  - Off label use [Unknown]
  - Disease progression [Fatal]
  - Gastrointestinal haemorrhage [Unknown]

NARRATIVE: CASE EVENT DATE: 20160427
